FAERS Safety Report 24838037 (Version 1)
Quarter: 2025Q1

REPORT INFORMATION
  Report Type: Report from Study
  Country: US (occurrence: US)
  Receive Date: 20250113
  Receipt Date: 20250113
  Transmission Date: 20250408
  Serious: Yes (Hospitalization, Other)
  Sender: ABBVIE
  Company Number: US-ABBVIE-6081551

PATIENT
  Age: 56 Year
  Sex: Male

DRUGS (1)
  1. RINVOQ [Suspect]
     Active Substance: UPADACITINIB
     Indication: Dermatitis atopic
     Route: 048
     Dates: start: 20220913

REACTIONS (4)
  - Wound infection bacterial [Not Recovered/Not Resolved]
  - Skin abrasion [Unknown]
  - Diabetes mellitus [Unknown]
  - Surgery [Unknown]

NARRATIVE: CASE EVENT DATE: 20240101
